FAERS Safety Report 7554804-7 (Version None)
Quarter: 2011Q2

REPORT INFORMATION
  Report Type: 
  Country: None (occurrence: None)
  Receive Date: 20110610
  Receipt Date: 20110526
  Transmission Date: 20111010
  Serious: Yes (Other)
  Sender: FDA-Public Use
  Company Number: RU-1186542

PATIENT
  Sex: Male

DRUGS (1)
  1. MAXIDEX [Suspect]
     Indication: POSTOPERATIVE CARE
     Dosage: OPHTHALMIC
     Route: 047

REACTIONS (1)
  - ULCERATIVE KERATITIS [None]
